FAERS Safety Report 4689064-8 (Version None)
Quarter: 2005Q2

REPORT INFORMATION
  Report Type: 
  Country: None (occurrence: None)
  Receive Date: 20050608
  Receipt Date: 20050207
  Transmission Date: 20051028
  Serious: No
  Sender: FDA-Public Use
  Company Number: 2005-BP-00315BP

PATIENT
  Age: 59 Year
  Sex: Female
  Weight: 54 kg

DRUGS (12)
  1. SPIRIVA [Suspect]
     Indication: SALIVARY HYPERSECRETION
     Dosage: 18 MCG (18 MCG), IH
     Route: 055
     Dates: start: 20041201
  2. SYNTHROID [Concomitant]
  3. KEPPRA [Concomitant]
  4. ZONEGRAN [Concomitant]
  5. . [Concomitant]
  6. . [Concomitant]
  7. . [Concomitant]
  8. TOPRMAX [Concomitant]
  9. FOLATE [Concomitant]
  10. CENTRUM (CENTRUM) [Concomitant]
  11. BEXTRA [Concomitant]
  12. NEXIUM [Concomitant]

REACTIONS (1)
  - INCREASED UPPER AIRWAY SECRETION [None]
